FAERS Safety Report 5888466-1 (Version None)
Quarter: 2008Q3

REPORT INFORMATION
  Report Type: 
  Country: None (occurrence: None)
  Receive Date: 20080918
  Receipt Date: 20080905
  Transmission Date: 20090109
  Serious: Yes (Hospitalization, Other)
  Sender: FDA-Public Use
  Company Number: US-ELI_LILLY_AND_COMPANY-US200808003753

PATIENT
  Sex: Female
  Weight: 58.503 kg

DRUGS (2)
  1. CYMBALTA [Suspect]
     Indication: EAR DISORDER
     Dosage: 60 MG, UNK
     Dates: start: 20070101, end: 20080101
  2. CYMBALTA [Suspect]
     Dosage: 40 MG, UNK
     Dates: start: 20080101, end: 20080804

REACTIONS (28)
  - ARTHRALGIA [None]
  - CONVULSION [None]
  - DIARRHOEA [None]
  - DRUG WITHDRAWAL SYNDROME [None]
  - FATIGUE [None]
  - FEELING ABNORMAL [None]
  - HEPATOTOXICITY [None]
  - HOT FLUSH [None]
  - HYPERHIDROSIS [None]
  - HYPOACUSIS [None]
  - HYPOAESTHESIA [None]
  - HYPOTENSION [None]
  - INFLUENZA LIKE ILLNESS [None]
  - LOSS OF CONSCIOUSNESS [None]
  - MALAISE [None]
  - MENTAL IMPAIRMENT [None]
  - MIGRAINE [None]
  - MOUTH ULCERATION [None]
  - NAUSEA [None]
  - NERVOUS SYSTEM DISORDER [None]
  - PARAESTHESIA [None]
  - PHOTOPHOBIA [None]
  - SEROTONIN SYNDROME [None]
  - STOMACH DISCOMFORT [None]
  - TINNITUS [None]
  - TRANSAMINASES INCREASED [None]
  - VOMITING [None]
  - WEIGHT DECREASED [None]
